FAERS Safety Report 6033333-6 (Version None)
Quarter: 2009Q1

REPORT INFORMATION
  Report Type: 
  Country: None (occurrence: None)
  Receive Date: 20090109
  Receipt Date: 20090106
  Transmission Date: 20090719
  Serious: Yes (Death, Other)
  Sender: FDA-Public Use
  Company Number: IT-CELGENEUS-083-20785-09010148

PATIENT
  Age: 56 Year
  Sex: Male

DRUGS (7)
  1. THALOMID [Suspect]
     Route: 048
  2. DEXAMETHASONE TAB [Suspect]
     Route: 065
  3. ZOLEDRONIC ACID [Concomitant]
     Indication: DRUG USE FOR UNKNOWN INDICATION
     Route: 065
  4. EPOGEN [Concomitant]
     Indication: DRUG USE FOR UNKNOWN INDICATION
     Dosage: 10 MU
     Route: 065
  5. MORPHINE [Concomitant]
     Indication: DRUG USE FOR UNKNOWN INDICATION
     Route: 048
  6. SALICYLATES [Concomitant]
     Indication: CORONARY ARTERY DISEASE
     Route: 065
  7. BETA BLOCKERS [Concomitant]
     Indication: CORONARY ARTERY DISEASE
     Route: 065

REACTIONS (5)
  - DEATH [None]
  - DISSEMINATED INTRAVASCULAR COAGULATION [None]
  - HAEMORRHAGIC DIATHESIS [None]
  - NEUROLOGICAL SYMPTOM [None]
  - RENAL IMPAIRMENT [None]
